FAERS Safety Report 7313295-1 (Version None)
Quarter: 2011Q1

REPORT INFORMATION
  Report Type: 
  Country: None (occurrence: None)
  Receive Date: 20110215
  Receipt Date: 20110215
  Transmission Date: 20110831
  Serious: No
  Sender: FDA-Public Use
  Company Number: None

PATIENT
  Age: 29 Year
  Sex: Male

DRUGS (1)
  1. VARENICLINE [Suspect]
     Indication: SMOKING CESSATION THERAPY
     Dosage: 1 TAB BID PO
     Route: 048
     Dates: start: 20100823, end: 20100825

REACTIONS (3)
  - URTICARIA [None]
  - PRURITUS [None]
  - RASH [None]
